FAERS Safety Report 15941352 (Version 2)
Quarter: 2019Q1

REPORT INFORMATION
  Report Type: Spontaneous
  Country: US (occurrence: US)
  Receive Date: 20190208
  Receipt Date: 20190222
  Transmission Date: 20190417
  Serious: Yes (Other)
  Sender: FDA-Public Use
  Company Number: US-ASCEND THERAPEUTICS-2062450

PATIENT
  Age: 62 Year
  Sex: Female

DRUGS (4)
  1. ANTI-INFLAMMATORY AGENT [Concomitant]
  2. MULTI VITAMIN INFUSION (ASCORBIC ACID, PYRIDOXINE HYDROCHLORIDE, TOCOP [Concomitant]
  3. NORMAL SALINE DROPS (SODIUM CHLORIDE) [Concomitant]
  4. ESTROGEL [Suspect]
     Active Substance: ESTRADIOL
     Dates: start: 201811

REACTIONS (1)
  - Thrombophlebitis superficial [Unknown]
